FAERS Safety Report 7429393-8 (Version None)
Quarter: 2011Q2

REPORT INFORMATION
  Report Type: 
  Country: None (occurrence: None)
  Receive Date: 20110414
  Receipt Date: 20110401
  Transmission Date: 20111010
  Serious: No
  Sender: FDA-Public Use
  Company Number: 025728

PATIENT
  Sex: Female
  Weight: 88 kg

DRUGS (24)
  1. TOPROL-XL [Concomitant]
  2. CODIOVAN [Concomitant]
  3. LEXAPRO [Concomitant]
  4. CIMZIA [Suspect]
     Indication: CROHN'S DISEASE
     Dosage: 400 MG 1X/MONTH SUBCUTANEOUS
     Route: 058
     Dates: start: 20100505
  5. ASPIRIN [Concomitant]
  6. TRAMADOL [Concomitant]
  7. LIPITOR [Concomitant]
  8. ADAVIR [Concomitant]
  9. ALLEGRA /0134201/ [Concomitant]
  10. LORAZEPAM [Concomitant]
  11. ENTOCORT EC [Concomitant]
  12. NOVOLOG [Concomitant]
  13. NORVASC [Concomitant]
  14. DETROL LA [Concomitant]
  15. PANTOPRAZOLE [Concomitant]
  16. LEVEMIR [Concomitant]
  17. UNKNOWN [Concomitant]
  18. CALCIUM CITRATE W/VITAMIN D NOS [Concomitant]
  19. TYLENOL (CAPLET) [Concomitant]
  20. LEVBID [Concomitant]
  21. NASACORT AQ [Concomitant]
  22. PROVENTIL HFA /00139501/ [Concomitant]
  23. NITROGLYCERIN [Concomitant]
  24. PROMETHAZINE [Concomitant]

REACTIONS (8)
  - ARTHRITIS [None]
  - ANAEMIA [None]
  - ROSACEA [None]
  - OSTEOARTHRITIS [None]
  - DECREASED APPETITE [None]
  - WEIGHT DECREASED [None]
  - FLATULENCE [None]
  - DRUG HYPERSENSITIVITY [None]
